FAERS Safety Report 4923174-2 (Version None)
Quarter: 2006Q1

REPORT INFORMATION
  Report Type: 
  Country: None (occurrence: None)
  Receive Date: 20060113
  Receipt Date: 20050418
  Transmission Date: 20060701
  Serious: Yes (Other)
  Sender: FDA-Public Use
  Company Number: HQWYE134827OCT04

PATIENT
  Age: 56 Year
  Sex: Female
  Weight: 62.65 kg

DRUGS (5)
  1. PREMPRO [Suspect]
     Indication: MENOPAUSAL SYMPTOMS
     Dosage: 6.25MG/2.5MG, ORAL
     Route: 048
  2. PREMARIN [Suspect]
     Indication: MENOPAUSAL SYMPTOMS
     Dosage: 0.625MG, ORAL
     Route: 048
  3. PROVERA [Suspect]
     Indication: MENOPAUSAL SYMPTOMS
     Dosage: 2.5 MG
  4. SYNTHROID [Concomitant]
  5. ZESTRIL [Concomitant]

REACTIONS (1)
  - BREAST CANCER [None]
